FAERS Safety Report 18699933 (Version 2)
Quarter: 2021Q1

REPORT INFORMATION
  Report Type: Spontaneous
  Country: US (occurrence: US)
  Receive Date: 20210104
  Receipt Date: 20210118
  Transmission Date: 20210419
  Serious: No
  Sender: FDA-Public Use
  Company Number: US-JNJFOC-20201253851

PATIENT
  Sex: Female

DRUGS (1)
  1. IMODIUM MULTI?SYMPTOM RELIEF [Suspect]
     Active Substance: DIMETHICONE\LOPERAMIDE HYDROCHLORIDE
     Indication: COLON OPERATION
     Route: 065

REACTIONS (4)
  - Product use in unapproved indication [Unknown]
  - Product package associated injury [Unknown]
  - Off label use [Unknown]
  - Product blister packaging issue [Unknown]
